FAERS Safety Report 24932948 (Version 2)
Quarter: 2025Q2

REPORT INFORMATION
  Report Type: Spontaneous
  Country: IL (occurrence: IL)
  Receive Date: 20250205
  Receipt Date: 20250407
  Transmission Date: 20250717
  Serious: Yes (Death, Other)
  Sender: TAKEDA
  Company Number: IL-JNJFOC-20250192385

PATIENT
  Age: 66 Year
  Sex: Male
  Weight: 92 kg

DRUGS (21)
  1. VELCADE [Suspect]
     Active Substance: BORTEZOMIB
     Indication: Primary amyloidosis
     Dosage: 2.75 MILLIGRAM, 1/WEEK
     Dates: start: 20241210, end: 20241210
  2. DARZALEX [Suspect]
     Active Substance: DARATUMUMAB
     Indication: Primary amyloidosis
     Dates: start: 20241210, end: 20250114
  3. CYCLOPHOSPHAMIDE [Suspect]
     Active Substance: CYCLOPHOSPHAMIDE
     Indication: Primary amyloidosis
     Dates: start: 20241210, end: 20250114
  4. SPIRONOLACTONE [Suspect]
     Active Substance: SPIRONOLACTONE
     Indication: Product used for unknown indication
  5. LAMOTRIGINE [Concomitant]
     Active Substance: LAMOTRIGINE
  6. ASPIRIN [Concomitant]
     Active Substance: ASPIRIN
  7. ASPIRIN [Concomitant]
     Active Substance: ASPIRIN
  8. EMPAGLIFLOZIN [Concomitant]
     Active Substance: EMPAGLIFLOZIN
  9. EMPAGLIFLOZIN [Concomitant]
     Active Substance: EMPAGLIFLOZIN
  10. ATORVASTATIN CALCIUM [Concomitant]
     Active Substance: ATORVASTATIN CALCIUM
  11. OMEPRAZOLE [Concomitant]
     Active Substance: OMEPRAZOLE
  12. FUROSEMIDE [Concomitant]
     Active Substance: FUROSEMIDE
  13. BISOPROLOL FUMARATE [Concomitant]
     Active Substance: BISOPROLOL FUMARATE
  14. CLONAZEPAM [Concomitant]
     Active Substance: CLONAZEPAM
  15. CIPROFLOXACIN [Concomitant]
     Active Substance: CIPROFLOXACIN
  16. VITAMIN B12 [Concomitant]
     Active Substance: CYANOCOBALAMIN
  17. VITAMIN D3 [Concomitant]
     Active Substance: CHOLECALCIFEROL
  18. IRON [Concomitant]
     Active Substance: IRON
  19. ONDANSETRON [Concomitant]
     Active Substance: ONDANSETRON
  20. LIPITOR [Concomitant]
     Active Substance: ATORVASTATIN CALCIUM
  21. BISOPROLOL FUMARATE [Concomitant]
     Active Substance: BISOPROLOL FUMARATE

REACTIONS (3)
  - Death [Fatal]
  - Arrhythmia [Fatal]
  - Off label use [Unknown]

NARRATIVE: CASE EVENT DATE: 20241210
